FAERS Safety Report 12970567 (Version 1)
Quarter: 2016Q4

REPORT INFORMATION
  Report Type: Spontaneous
  Country: NO (occurrence: NO)
  Receive Date: 20161123
  Receipt Date: 20161123
  Transmission Date: 20170207
  Serious: Yes (Hospitalization)
  Sender: FDA-Public Use
  Company Number: NO-ELI_LILLY_AND_COMPANY-NO201611006361

PATIENT
  Age: 81 Year
  Sex: Female

DRUGS (3)
  1. GEMCITABINE HYDROCHLORIDE. [Suspect]
     Active Substance: GEMCITABINE HYDROCHLORIDE
     Indication: CHEMOTHERAPY
     Dosage: 950 MG, UNK
     Route: 065
     Dates: start: 20161017, end: 20161017
  2. GEMCITABINE HYDROCHLORIDE. [Suspect]
     Active Substance: GEMCITABINE HYDROCHLORIDE
     Dosage: 950 MG, UNK
     Route: 065
     Dates: start: 20161031, end: 20161031
  3. GEMCITABINE HYDROCHLORIDE. [Suspect]
     Active Substance: GEMCITABINE HYDROCHLORIDE
     Indication: CHOLANGIOCARCINOMA
     Dosage: 950 MG, UNK
     Route: 065
     Dates: start: 20161024, end: 20161024

REACTIONS (1)
  - Athetosis [Recovered/Resolved]

NARRATIVE: CASE EVENT DATE: 20161031
